FAERS Safety Report 7146548-0 (Version None)
Quarter: 2010Q4

REPORT INFORMATION
  Report Type: 
  Country: None (occurrence: None)
  Receive Date: 20101208
  Receipt Date: 20101126
  Transmission Date: 20110411
  Serious: Yes (Other)
  Sender: FDA-Public Use
  Company Number: JP-CELGENEUS-087-21880-10112963

PATIENT
  Age: 68 Year
  Sex: Female
  Weight: 34.5 kg

DRUGS (19)
  1. REVLIMID [Suspect]
     Indication: MULTIPLE MYELOMA
     Route: 048
     Dates: start: 20100908, end: 20100916
  2. REVLIMID [Suspect]
     Route: 048
     Dates: start: 20101007, end: 20101015
  3. REVLIMID [Suspect]
     Route: 048
     Dates: start: 20101021, end: 20101027
  4. REVLIMID [Suspect]
     Route: 048
     Dates: start: 20101104, end: 20101117
  5. PREDONINE [Concomitant]
     Indication: MULTIPLE MYELOMA
     Route: 048
     Dates: start: 20100908, end: 20101117
  6. PREDONINE [Concomitant]
     Route: 041
     Dates: start: 20101118, end: 20101118
  7. VALTREX [Concomitant]
     Indication: MULTIPLE MYELOMA
     Route: 048
     Dates: start: 20100908, end: 20101117
  8. NU-LOTAN [Concomitant]
     Indication: HYPERTENSION
     Route: 048
     Dates: start: 20100908, end: 20101117
  9. TAKEPRON [Concomitant]
     Indication: PROPHYLAXIS
     Route: 048
     Dates: start: 20100908, end: 20101117
  10. VFEND [Concomitant]
     Indication: PROPHYLAXIS
     Route: 048
     Dates: start: 20100908, end: 20101117
  11. BEZATOL SR [Concomitant]
     Route: 048
     Dates: start: 20100908, end: 20101117
  12. PROGRAF [Concomitant]
     Indication: MULTIPLE MYELOMA
     Route: 048
     Dates: start: 20100908, end: 20101103
  13. LASIX [Concomitant]
     Indication: MULTIPLE MYELOMA
     Route: 048
     Dates: start: 20100908, end: 20101117
  14. CYANOCOBALAMIN [Concomitant]
     Indication: MULTIPLE MYELOMA
     Route: 048
     Dates: start: 20100908, end: 20101117
  15. FOLIAMIN [Concomitant]
     Indication: MULTIPLE MYELOMA
     Route: 048
     Dates: start: 20100908, end: 20101117
  16. LENDORMIN D [Concomitant]
     Indication: MULTIPLE MYELOMA
     Route: 048
     Dates: start: 20100916, end: 20101117
  17. NOVORAPID [Concomitant]
     Indication: DIABETES MELLITUS
     Dosage: 2 UNITS
     Route: 058
     Dates: start: 20100916, end: 20101117
  18. MUCODYNE [Concomitant]
     Indication: PROPHYLAXIS
     Route: 048
     Dates: start: 20100917, end: 20100923
  19. ZOMETA [Concomitant]
     Indication: MULTIPLE MYELOMA
     Route: 041
     Dates: start: 20101007, end: 20101104

REACTIONS (5)
  - DIARRHOEA [None]
  - ENTEROCOLITIS [None]
  - HERPES ZOSTER [None]
  - PANCREATITIS ACUTE [None]
  - PNEUMONIA [None]
